FAERS Safety Report 10077124 (Version 1)
Quarter: 2014Q2

REPORT INFORMATION
  Report Type: Spontaneous
  Country: FI (occurrence: None)
  Receive Date: 20140410
  Receipt Date: 20140410
  Transmission Date: 20141212
  Serious: Yes (Other)
  Sender: FDA-Public Use
  Company Number: 2278044

PATIENT
  Age: 58 Year
  Sex: Female

DRUGS (4)
  1. PACLITAXEL [Suspect]
     Indication: BREAST CANCER METASTATIC
     Route: 041
  2. BEVACIZUMAB [Suspect]
     Indication: BREAST CANCER METASTATIC
     Dosage: 10 MG/KG MILLIGRAM(S)/KILOGRAM (1 WEEK)
     Route: 041
  3. METOPROLOL [Concomitant]
  4. THYROXIN [Concomitant]

REACTIONS (6)
  - Hypothyroidism [None]
  - Hypertension [None]
  - Rash papulosquamous [None]
  - Pruritus [None]
  - Dermatitis [None]
  - Blood alkaline phosphatase increased [None]
